FAERS Safety Report 14684511 (Version 2)
Quarter: 2018Q1

REPORT INFORMATION
  Report Type: Spontaneous
  Country: US (occurrence: US)
  Receive Date: 20180327
  Receipt Date: 20180328
  Transmission Date: 20180509
  Serious: Yes (Other)
  Sender: FDA-Public Use
  Company Number: US-TEVA-2018-US-869617

PATIENT
  Sex: Male

DRUGS (1)
  1. COPAXONE [Suspect]
     Active Substance: GLATIRAMER ACETATE

REACTIONS (8)
  - Heart rate increased [Unknown]
  - Swelling face [Unknown]
  - Drug effect decreased [Unknown]
  - Injection site pruritus [Unknown]
  - Injection site pain [Recovered/Resolved]
  - Feeling abnormal [Unknown]
  - Multiple sclerosis relapse [Unknown]
  - Chills [Recovered/Resolved]
